FAERS Safety Report 13365958 (Version 1)
Quarter: 2017Q1

REPORT INFORMATION
  Report Type: Spontaneous
  Country: US (occurrence: US)
  Receive Date: 20170323
  Receipt Date: 20170323
  Transmission Date: 20170429
  Serious: No
  Sender: FDA-Public Use
  Company Number: US-ALLERGAN-1700745US

PATIENT
  Sex: Male
  Weight: 58.96 kg

DRUGS (6)
  1. VIBERZI [Suspect]
     Active Substance: ELUXADOLINE
     Indication: DIARRHOEA
     Dosage: 100 MG, BID
     Route: 048
     Dates: start: 201612, end: 20170104
  2. LISINOPRIL. [Concomitant]
     Active Substance: LISINOPRIL
     Dosage: UNK
     Route: 048
  3. SERTRALINE [Concomitant]
     Active Substance: SERTRALINE HYDROCHLORIDE
     Dosage: 100 MG, BID
     Route: 048
  4. VIBERZI [Suspect]
     Active Substance: ELUXADOLINE
     Dosage: 100 MG, BID
     Route: 048
     Dates: start: 201612, end: 20170104
  5. AMLODIPINE [Concomitant]
     Active Substance: AMLODIPINE BESYLATE
     Indication: HYPERTENSION
     Dosage: UNK
     Route: 048
  6. ATENOLOL. [Concomitant]
     Active Substance: ATENOLOL
     Dosage: UNK
     Route: 048

REACTIONS (2)
  - Off label use [Unknown]
  - Drug ineffective [Unknown]
